FAERS Safety Report 9769554 (Version 2)
Quarter: 2013Q4

REPORT INFORMATION
  Report Type: Spontaneous
  Country: US (occurrence: US)
  Receive Date: 20131218
  Receipt Date: 20131218
  Transmission Date: 20140711
  Serious: No
  Sender: FDA-Public Use
  Company Number: US-SHIONOGI, INC-2013000260

PATIENT
  Age: 78 Year
  Sex: Female

DRUGS (4)
  1. OSPHENA [Suspect]
     Indication: ATROPHIC VULVOVAGINITIS
     Dosage: 60 MG, UNK
     Route: 065
     Dates: start: 20130815, end: 20130817
  2. ESTRACE VAGINAL [Concomitant]
     Indication: PRODUCT USED FOR UNKNOWN INDICATION
     Dosage: UNK
     Route: 067
  3. ATELVIA [Concomitant]
     Indication: OSTEOPOROSIS
     Dosage: UNK
     Route: 065
  4. BENICAR [Concomitant]
     Dosage: UNK
     Route: 065

REACTIONS (1)
  - Drug hypersensitivity [Recovered/Resolved]
